FAERS Safety Report 15208343 (Version 1)
Quarter: 2018Q3

REPORT INFORMATION
  Report Type: Spontaneous
  Country: US (occurrence: US)
  Receive Date: 20180727
  Receipt Date: 20180727
  Transmission Date: 20181010
  Serious: Yes (Other)
  Sender: FDA-Public Use
  Company Number: US-JNJFOC-20180718622

PATIENT
  Sex: Female
  Weight: 64 kg

DRUGS (16)
  1. CLONIDINE. [Concomitant]
     Active Substance: CLONIDINE
  2. AMLODIPINE [Concomitant]
     Active Substance: AMLODIPINE BESYLATE
  3. XANAX [Concomitant]
     Active Substance: ALPRAZOLAM
  4. IMBRUVICA [Suspect]
     Active Substance: IBRUTINIB
     Indication: WALDENSTROM^S MACROGLOBULINAEMIA
     Route: 048
     Dates: start: 201805
  5. VALACYCLOVIR [Concomitant]
     Active Substance: VALACYCLOVIR HYDROCHLORIDE
  6. KEFLEX [Concomitant]
     Active Substance: CEPHALEXIN
  7. VITAMIN D [Concomitant]
     Active Substance: CHOLECALCIFEROL
  8. VALSARTAN. [Concomitant]
     Active Substance: VALSARTAN
  9. ASPIRIN. [Concomitant]
     Active Substance: ASPIRIN
  10. HYDROCHLOROTHIAZIDE. [Concomitant]
     Active Substance: HYDROCHLOROTHIAZIDE
  11. IMBRUVICA [Suspect]
     Active Substance: IBRUTINIB
     Indication: WALDENSTROM^S MACROGLOBULINAEMIA
     Route: 048
     Dates: start: 2017
  12. IRON [Concomitant]
     Active Substance: IRON
  13. PREDNISONE. [Concomitant]
     Active Substance: PREDNISONE
  14. METOPROLOL. [Concomitant]
     Active Substance: METOPROLOL
  15. RANITIDINE. [Concomitant]
     Active Substance: RANITIDINE
  16. ALLOPURINOL. [Concomitant]
     Active Substance: ALLOPURINOL

REACTIONS (3)
  - Blood pressure increased [Unknown]
  - Anxiety [Unknown]
  - Herpes zoster [Unknown]
